FAERS Safety Report 19270500 (Version 1)
Quarter: 2021Q2

REPORT INFORMATION
  Report Type: Spontaneous
  Country: US (occurrence: US)
  Receive Date: 20210518
  Receipt Date: 20210518
  Transmission Date: 20210717
  Serious: No
  Sender: FDA-Public Use
  Company Number: US-ELI_LILLY_AND_COMPANY-US202105002990

PATIENT
  Age: 58 Year
  Sex: Female

DRUGS (2)
  1. OLUMIANT [Suspect]
     Active Substance: BARICITINIB
     Indication: ARTHRALGIA
  2. OLUMIANT [Suspect]
     Active Substance: BARICITINIB
     Indication: PAIN IN EXTREMITY
     Dosage: UNK UNK, UNKNOWN
     Route: 065
     Dates: start: 20210421

REACTIONS (5)
  - Pain in extremity [Unknown]
  - Arthralgia [Unknown]
  - Rheumatoid factor positive [Unknown]
  - Off label use [Unknown]
  - Anti-cyclic citrullinated peptide antibody positive [Unknown]

NARRATIVE: CASE EVENT DATE: 20210502
